FAERS Safety Report 20393811 (Version 1)
Quarter: 2022Q1

REPORT INFORMATION
  Report Type: Report from Study
  Country: US (occurrence: US)
  Receive Date: 20220128
  Receipt Date: 20220128
  Transmission Date: 20220423
  Serious: Yes (Other)
  Sender: FDA-Public Use
  Company Number: US-ABBVIE-22K-163-4249549-00

PATIENT

DRUGS (1)
  1. SKYRIZI [Suspect]
     Active Substance: RISANKIZUMAB-RZAA
     Indication: Psoriasis
     Route: 058

REACTIONS (15)
  - Prostate cancer [Unknown]
  - Osteoarthritis [Unknown]
  - Hiatus hernia [Unknown]
  - Gastrooesophageal reflux disease [Unknown]
  - Oesophageal dilation procedure [Unknown]
  - Dysphagia [Unknown]
  - Throat clearing [Unknown]
  - Nasal ulcer [Unknown]
  - Cough [Unknown]
  - Dizziness [Unknown]
  - Hyperlipidaemia [Unknown]
  - Tooth infection [Unknown]
  - Prostatic specific antigen increased [Unknown]
  - Benign prostatic hyperplasia [Unknown]
  - Allergic sinusitis [Unknown]
